FAERS Safety Report 9475850 (Version 1)
Quarter: 2013Q3

REPORT INFORMATION
  Report Type: Spontaneous
  Country: US (occurrence: None)
  Receive Date: 20130822
  Receipt Date: 20130822
  Transmission Date: 20140515
  Serious: Yes (Other)
  Sender: FDA-Public Use
  Company Number: None

PATIENT
  Age: 70 Year
  Sex: Female
  Weight: 62.14 kg

DRUGS (3)
  1. XELJANZ [Suspect]
     Route: 048
     Dates: start: 20130304, end: 20130618
  2. XELJANZ [Suspect]
     Route: 048
     Dates: start: 20130304, end: 20130618
  3. XELJANZ [Suspect]
     Indication: RHEUMATOID ARTHRITIS
     Route: 048
     Dates: start: 20130304, end: 20130618

REACTIONS (2)
  - Haemorrhage [None]
  - Haemoglobin decreased [None]
